FAERS Safety Report 19075820 (Version 3)
Quarter: 2023Q2

REPORT INFORMATION
  Report Type: Spontaneous
  Country: US (occurrence: US)
  Receive Date: 20210330
  Receipt Date: 20230501
  Transmission Date: 20230722
  Serious: Yes (Hospitalization, Other)
  Sender: FDA-Public Use
  Company Number: US-GILEAD-2021-0523103

PATIENT
  Age: 55 Year
  Sex: Male
  Weight: 100.68 kg

DRUGS (24)
  1. TRUVADA [Suspect]
     Active Substance: EMTRICITABINE\TENOFOVIR DISOPROXIL FUMARATE
     Indication: HIV infection
     Dosage: UNK
     Route: 048
     Dates: start: 2009
  2. TRUVADA [Suspect]
     Active Substance: EMTRICITABINE\TENOFOVIR DISOPROXIL FUMARATE
     Dosage: UNK
     Route: 048
     Dates: start: 200408, end: 2006
  3. TRUVADA [Suspect]
     Active Substance: EMTRICITABINE\TENOFOVIR DISOPROXIL FUMARATE
     Dosage: UNK
     Route: 048
     Dates: start: 2006, end: 2020
  4. TRUVADA [Suspect]
     Active Substance: EMTRICITABINE\TENOFOVIR DISOPROXIL FUMARATE
     Dosage: UNK
     Route: 048
     Dates: start: 200408, end: 2020
  5. BIKTARVY [Concomitant]
     Active Substance: BICTEGRAVIR SODIUM\EMTRICITABINE\TENOFOVIR ALAFENAMIDE FUMARATE
  6. ALBUTEROL [Concomitant]
     Active Substance: ALBUTEROL
  7. BANOPHEN [Concomitant]
     Active Substance: DIPHENHYDRAMINE HYDROCHLORIDE
  8. CRIXIVAN [Concomitant]
     Active Substance: INDINAVIR SULFATE
  9. DULOXETINE [Concomitant]
     Active Substance: DULOXETINE
  10. FLUCONAZOLE [Concomitant]
     Active Substance: FLUCONAZOLE
  11. INVIRASE [Concomitant]
     Active Substance: SAQUINAVIR MESYLATE
  12. KALETRA [Concomitant]
     Active Substance: LOPINAVIR\RITONAVIR
  13. LATUDA [Concomitant]
     Active Substance: LURASIDONE HYDROCHLORIDE
  14. LISINOPRIL [Concomitant]
     Active Substance: LISINOPRIL
  15. METFORMIN [Concomitant]
     Active Substance: METFORMIN HYDROCHLORIDE
  16. NASONEX [Concomitant]
     Active Substance: MOMETASONE FUROATE
  17. NORVIR [Concomitant]
     Active Substance: RITONAVIR
  18. RETROVIR [Concomitant]
     Active Substance: ZIDOVUDINE
  19. SUSTIVA [Concomitant]
     Active Substance: EFAVIRENZ
  20. TIVICAY [Concomitant]
     Active Substance: DOLUTEGRAVIR SODIUM
  21. TRAZODONE [Concomitant]
     Active Substance: TRAZODONE HYDROCHLORIDE
  22. VIRACEPT [Concomitant]
     Active Substance: NELFINAVIR MESYLATE
  23. ZERIT [Concomitant]
     Active Substance: STAVUDINE
  24. COMBIVIR [Concomitant]
     Active Substance: LAMIVUDINE\ZIDOVUDINE

REACTIONS (7)
  - Renal failure [Not Recovered/Not Resolved]
  - Emotional distress [Not Recovered/Not Resolved]
  - Anhedonia [Not Recovered/Not Resolved]
  - Gait disturbance [Unknown]
  - Dysstasia [Unknown]
  - Anxiety [Not Recovered/Not Resolved]
  - Pain [Not Recovered/Not Resolved]

NARRATIVE: CASE EVENT DATE: 20151201
